FAERS Safety Report 10260330 (Version 1)
Quarter: 2014Q2

REPORT INFORMATION
  Report Type: Spontaneous
  Country: US (occurrence: US)
  Receive Date: 20140625
  Receipt Date: 20140625
  Transmission Date: 20141212
  Serious: No
  Sender: FDA-Public Use
  Company Number: US-SA-2014SA069666

PATIENT
  Age: 33 Year
  Sex: Female

DRUGS (14)
  1. AUBAGIO [Suspect]
     Indication: MULTIPLE SCLEROSIS
     Route: 048
     Dates: start: 20140514
  2. TYLENOL [Concomitant]
  3. CYMBALTA [Concomitant]
  4. AFRIN NASAL SPRAY [Concomitant]
  5. PROMETHAZINE [Concomitant]
  6. VITAMIN D [Concomitant]
  7. B COMPLEX [Concomitant]
  8. VITAMIN D [Concomitant]
  9. BENADRYL [Concomitant]
  10. GABITRIL [Concomitant]
  11. NAPROXEN SODIUM [Concomitant]
  12. OMEGA 3 [Concomitant]
  13. VYVANSE [Concomitant]
  14. ALL OTHER THERAPEUTIC PRODUCTS [Concomitant]

REACTIONS (4)
  - Premenstrual syndrome [Unknown]
  - Headache [Unknown]
  - Emotional disorder [Unknown]
  - Premenstrual cramps [Unknown]
